FAERS Safety Report 9762681 (Version 1)
Quarter: 2013Q4

REPORT INFORMATION
  Report Type: Spontaneous
  Country: US (occurrence: US)
  Receive Date: 20131216
  Receipt Date: 20131216
  Transmission Date: 20140711
  Serious: No
  Sender: FDA-Public Use
  Company Number: US-BIOGENIDEC-2013BI103873

PATIENT
  Sex: Female

DRUGS (9)
  1. TECFIDERA [Suspect]
     Indication: MULTIPLE SCLEROSIS
     Dates: start: 2013
  2. TECFIDERA [Suspect]
     Indication: MULTIPLE SCLEROSIS
     Route: 048
     Dates: start: 201309
  3. AMPYRA [Concomitant]
     Route: 048
     Dates: start: 20130129
  4. BETASERON [Concomitant]
  5. TYLENOL [Concomitant]
  6. GABAPENTIN [Concomitant]
  7. NAPROXEN [Concomitant]
  8. ZYRTEC [Concomitant]
  9. LABETALOL [Concomitant]

REACTIONS (6)
  - Hypoaesthesia [Unknown]
  - Paraesthesia [Unknown]
  - Stress [Unknown]
  - Depression [Unknown]
  - Flushing [Unknown]
  - Feeling hot [Unknown]
